FAERS Safety Report 23624158 (Version 1)
Quarter: 2024Q1

REPORT INFORMATION
  Report Type: Spontaneous
  Country: CN (occurrence: CN)
  Receive Date: 20240312
  Receipt Date: 20240312
  Transmission Date: 20240410
  Serious: Yes (Other)
  Sender: FDA-Public Use
  Company Number: CN-KYOWAKIRIN-2024KK004685

PATIENT

DRUGS (1)
  1. TOREMIFENE [Suspect]
     Active Substance: TOREMIFENE
     Indication: Breast cancer
     Dosage: 1 DOSAGE FORM (1 DOSAGE FORM,1 IN 1 D)
     Route: 048
     Dates: start: 20240222, end: 20240306

REACTIONS (1)
  - Endometrial thickening [Unknown]

NARRATIVE: CASE EVENT DATE: 20240306
